FAERS Safety Report 17484710 (Version 1)
Quarter: 2020Q1

REPORT INFORMATION
  Report Type: Spontaneous
  Country: ES (occurrence: ES)
  Receive Date: 20200302
  Receipt Date: 20200302
  Transmission Date: 20200409
  Serious: Yes (Hospitalization)
  Sender: FDA-Public Use
  Company Number: ES-MYLANLABS-2020M1021868

PATIENT
  Age: 85 Year
  Sex: Female

DRUGS (5)
  1. ALOPURINOL [Concomitant]
     Active Substance: ALLOPURINOL
     Indication: HYPERURICAEMIA
     Dosage: 100 MG DIA
     Route: 048
     Dates: start: 20090101
  2. METFORMIN [Suspect]
     Active Substance: METFORMIN HYDROCHLORIDE
     Indication: TYPE 2 DIABETES MELLITUS
     Dosage: 850MG 1-1-1/2
     Route: 048
     Dates: start: 20070220, end: 20190810
  3. HIBOR [Concomitant]
     Indication: ISCHAEMIC STROKE
     Dosage: 1 INYECCCIO  DIA
     Route: 058
     Dates: start: 20190523, end: 20190812
  4. CEFTRIAXONA                        /00672201/ [Concomitant]
     Active Substance: CEFTRIAXONE
     Indication: PNEUMONIA
     Dosage: 1 GR DIA
     Route: 065
     Dates: start: 20190805, end: 20190811
  5. LEVOFLOXACINO                      /01278901/ [Concomitant]
     Active Substance: LEVOFLOXACIN
     Indication: PNEUMONIA
     Dosage: 500 MG DIA
     Route: 048
     Dates: start: 20190805, end: 20190811

REACTIONS (2)
  - Hypoglycaemia [Recovered/Resolved]
  - Lactic acidosis [Recovered/Resolved]

NARRATIVE: CASE EVENT DATE: 20190810
